FAERS Safety Report 17469936 (Version 1)
Quarter: 2020Q1

REPORT INFORMATION
  Report Type: Spontaneous
  Country: US (occurrence: US)
  Receive Date: 20200227
  Receipt Date: 20200227
  Transmission Date: 20200409
  Serious: No
  Sender: FDA-Public Use
  Company Number: US-ELI_LILLY_AND_COMPANY-US202001013728

PATIENT
  Age: 45 Year
  Sex: Female

DRUGS (6)
  1. EMGALITY [Suspect]
     Active Substance: GALCANEZUMAB-GNLM
     Indication: MIGRAINE
     Dosage: UNK, EVERY 27 DAYS
     Dates: start: 20191209
  2. EMGALITY [Suspect]
     Active Substance: GALCANEZUMAB-GNLM
     Indication: MIGRAINE
     Dosage: UNK, EVERY 27 DAYS
     Dates: start: 20191209
  3. BUTALBITAL;CAFFEINE;PARACETAMOL [Concomitant]
     Indication: PRODUCT USED FOR UNKNOWN INDICATION
     Dosage: 300MG/40MG/50MG, UNKNOWN
     Route: 065
  4. EMGALITY [Suspect]
     Active Substance: GALCANEZUMAB-GNLM
     Dosage: UNK, EVERY 27 DAYS
     Dates: start: 20200105
  5. EMGALITY [Suspect]
     Active Substance: GALCANEZUMAB-GNLM
     Dosage: UNK, EVERY 27 DAYS
     Dates: start: 20200105
  6. FIORICET [Concomitant]
     Active Substance: ACETAMINOPHEN\BUTALBITAL\CAFFEINE
     Indication: MIGRAINE
     Dosage: 50 MG, UNKNOWN
     Route: 065

REACTIONS (2)
  - Inappropriate schedule of product administration [Unknown]
  - Balance disorder [Unknown]

NARRATIVE: CASE EVENT DATE: 202001
